FAERS Safety Report 15849430 (Version 3)
Quarter: 2019Q1

REPORT INFORMATION
  Report Type: Spontaneous
  Country: US (occurrence: US)
  Receive Date: 20190121
  Receipt Date: 20190219
  Transmission Date: 20190417
  Serious: No
  Sender: FDA-Public Use
  Company Number: US-BIOGEN-2019BI00684025

PATIENT
  Sex: Female

DRUGS (1)
  1. TYSABRI [Suspect]
     Active Substance: NATALIZUMAB
     Indication: MULTIPLE SCLEROSIS
     Route: 042
     Dates: start: 20150709, end: 20170123

REACTIONS (13)
  - Gastrointestinal pain [Recovered/Resolved]
  - Fall [Recovered/Resolved]
  - Hunger [Unknown]
  - Neuralgia [Not Recovered/Not Resolved]
  - Decreased appetite [Unknown]
  - Optic nerve disorder [Not Recovered/Not Resolved]
  - Visual acuity reduced [Not Recovered/Not Resolved]
  - Joint injury [Unknown]
  - Haemarthrosis [Unknown]
  - Lacrimation increased [Unknown]
  - Ocular hyperaemia [Unknown]
  - Rhinorrhoea [Unknown]
  - Eyelid ptosis [Unknown]
